FAERS Safety Report 16725625 (Version 2)
Quarter: 2019Q3

REPORT INFORMATION
  Report Type: Spontaneous
  Country: US (occurrence: US)
  Receive Date: 20190821
  Receipt Date: 20190823
  Transmission Date: 20191005
  Serious: Yes (Hospitalization, Other)
  Sender: FDA-Public Use
  Company Number: US-009507513-1908USA007677

PATIENT
  Age: 79 Year
  Sex: Female

DRUGS (2)
  1. BEXAROTENE. [Concomitant]
     Active Substance: BEXAROTENE
     Dosage: UNK
  2. INTRON A [Suspect]
     Active Substance: INTERFERON ALFA-2B
     Indication: CUTANEOUS T-CELL LYMPHOMA
     Dosage: STRENGTH: 18 MU MDV (6MU/ML), DOSE: 0.17 MILLILITERS, 1,020,000 UNITS TOTAL, 3 TIMES A WEEK
     Route: 058
     Dates: start: 20180404

REACTIONS (3)
  - Prinzmetal angina [Unknown]
  - Myocardial infarction [Not Recovered/Not Resolved]
  - Product dose omission [Unknown]

NARRATIVE: CASE EVENT DATE: 20190810
